FAERS Safety Report 9120919 (Version 1)
Quarter: 2013Q1

REPORT INFORMATION
  Report Type: Spontaneous
  Country: JP (occurrence: JP)
  Receive Date: 20130226
  Receipt Date: 20130226
  Transmission Date: 20140127
  Serious: Yes (Other)
  Sender: FDA-Public Use
  Company Number: JP-GLAXOSMITHKLINE-B0867320A

PATIENT
  Age: 11 Year
  Sex: Female

DRUGS (6)
  1. RELENZA [Suspect]
     Indication: INFLUENZA
     Dosage: 10MG TWICE PER DAY
     Route: 055
     Dates: start: 20130205
  2. MUCODYNE [Concomitant]
     Route: 048
  3. MUCOSOLVAN [Concomitant]
     Route: 048
     Dates: start: 20130205
  4. FLUTIDE [Concomitant]
     Indication: ASTHMA
     Route: 055
  5. SINGULAIR [Concomitant]
     Indication: ASTHMA
     Route: 048
  6. ALESION [Concomitant]
     Indication: ASTHMA
     Route: 048

REACTIONS (2)
  - Haemorrhage subcutaneous [Recovering/Resolving]
  - Erythema [Recovering/Resolving]
